FAERS Safety Report 16987128 (Version 1)
Quarter: 2019Q4

REPORT INFORMATION
  Report Type: Spontaneous
  Country: IT (occurrence: IT)
  Receive Date: 20191102
  Receipt Date: 20191102
  Transmission Date: 20200122
  Serious: Yes (Hospitalization, Other)
  Sender: FDA-Public Use
  Company Number: IT-AUROBINDO-AUR-APL-2019-069994

PATIENT
  Age: 86 Year
  Sex: Female

DRUGS (2)
  1. FERRIC CARBOXYMALTOSE [Concomitant]
     Active Substance: FERRIC CARBOXYMALTOSE
     Indication: PRODUCT USED FOR UNKNOWN INDICATION
     Dosage: UNK
     Route: 065
  2. CLOPIDOGREL [Suspect]
     Active Substance: CLOPIDOGREL BISULFATE
     Indication: ATRIAL FIBRILLATION
     Dosage: UNK
     Route: 065

REACTIONS (6)
  - Normochromic anaemia [Unknown]
  - Dieulafoy^s vascular malformation [Unknown]
  - Rectal haemorrhage [Unknown]
  - Haematochezia [Unknown]
  - Melaena [Unknown]
  - Gastrointestinal haemorrhage [Unknown]
